FAERS Safety Report 4630791-6 (Version None)
Quarter: 2005Q2

REPORT INFORMATION
  Report Type: 
  Country: None (occurrence: None)
  Receive Date: 20050406
  Receipt Date: 20050318
  Transmission Date: 20051028
  Serious: Yes (Hospitalization, Other)
  Sender: FDA-Public Use
  Company Number: USA050290231

PATIENT
  Age: 58 Year
  Sex: Female
  Weight: 67 kg

DRUGS (6)
  1. HUMALOG [Suspect]
     Indication: DIABETES MELLITUS
     Dates: start: 19980101
  2. FORTEO [Suspect]
     Indication: FRACTURE
     Dosage: 20 UG
     Dates: start: 20041201
  3. HUMULIN L [Suspect]
     Indication: DIABETES MELLITUS
     Dates: end: 19980101
  4. HUMULIN-HUMAN INSULIN (RDNA) UNKNOWN FORMULATION (HU [Suspect]
     Indication: DIABETES MELLITUS
     Dates: end: 19980101
  5. ILETIN [Suspect]
     Indication: DIABETES MELLITUS
  6. CALCIUM GLUCONATE [Concomitant]

REACTIONS (20)
  - BODY HEIGHT DECREASED [None]
  - CARDIAC DISORDER [None]
  - CARDIAC OPERATION [None]
  - DIZZINESS [None]
  - DYSSTASIA [None]
  - EYE DISORDER [None]
  - EYE HAEMORRHAGE [None]
  - FALL [None]
  - IMPAIRED HEALING [None]
  - IMPAIRED WORK ABILITY [None]
  - INFLUENZA [None]
  - INTERVERTEBRAL DISC DISORDER [None]
  - LIMB CRUSHING INJURY [None]
  - NAUSEA [None]
  - NEUROPATHY [None]
  - OSTEOPENIA [None]
  - PHARMACEUTICAL PRODUCT COMPLAINT [None]
  - RENAL FAILURE [None]
  - RIB FRACTURE [None]
  - UPPER LIMB FRACTURE [None]
